FAERS Safety Report 6089485-5 (Version None)
Quarter: 2009Q1

REPORT INFORMATION
  Report Type: 
  Country: None (occurrence: None)
  Receive Date: 20090224
  Receipt Date: 20090217
  Transmission Date: 20090719
  Serious: Yes (Hospitalization)
  Sender: FDA-Public Use
  Company Number: US-GILEAD-2009-0020375

PATIENT
  Sex: Female
  Weight: 118.04 kg

DRUGS (23)
  1. LETAIRIS [Suspect]
     Indication: PULMONARY ARTERIAL HYPERTENSION
     Route: 048
     Dates: start: 20081104
  2. LASIX [Concomitant]
  3. LISINOPRIL [Concomitant]
  4. TOPROL-XL [Concomitant]
  5. ASPIRIN [Concomitant]
  6. CELLCEPT [Concomitant]
  7. PREDNISONE [Concomitant]
  8. SYNTHROID [Concomitant]
  9. AMITRIPTYLINE [Concomitant]
  10. EFFEXOR XR [Concomitant]
  11. PLAQUENIL [Concomitant]
  12. AMBIEN [Concomitant]
  13. LYRICA [Concomitant]
  14. GLUCOPHAGE [Concomitant]
  15. OXYBUTYNIN CHLORIDE [Concomitant]
  16. CRESTOR [Concomitant]
  17. MOBIC [Concomitant]
  18. PROAIR HFA [Concomitant]
  19. PRILOSEC [Concomitant]
  20. TRAMADOL HCL [Concomitant]
  21. MIACALCIN [Concomitant]
  22. VITAMIN D [Concomitant]
  23. CALCIUM W/D [Concomitant]

REACTIONS (2)
  - CYSTITIS [None]
  - INFLUENZA LIKE ILLNESS [None]
